FAERS Safety Report 8419411-2 (Version None)
Quarter: 2012Q2

REPORT INFORMATION
  Report Type: 
  Country: None (occurrence: None)
  Receive Date: 20120607
  Receipt Date: 20120605
  Transmission Date: 20120825
  Serious: Yes (Other)
  Sender: FDA-Public Use
  Company Number: US-GLAXOSMITHKLINE-A0974624A

PATIENT
  Sex: Male

DRUGS (3)
  1. PAROXETINE HCL [Suspect]
     Indication: DEPRESSION
     Route: 048
  2. PAXIL [Concomitant]
     Indication: DEPRESSION
     Route: 048
     Dates: end: 20120101
  3. PAXIL CR [Suspect]
     Indication: DEPRESSION
     Route: 048
     Dates: start: 20120101

REACTIONS (4)
  - DEPRESSION [None]
  - SUICIDAL IDEATION [None]
  - DRUG INEFFECTIVE [None]
  - PRODUCT QUALITY ISSUE [None]
